FAERS Safety Report 4723452-6 (Version None)
Quarter: 2005Q3

REPORT INFORMATION
  Report Type: 
  Country: None (occurrence: None)
  Receive Date: 20050721
  Receipt Date: 20050721
  Transmission Date: 20060218
  Serious: No
  Sender: FDA-Public Use
  Company Number: None

PATIENT
  Age: 69 Year
  Sex: Male
  Weight: 49 kg

DRUGS (2)
  1. WARFARIN 5MG [Suspect]
     Dosage: 5MG DAILY ORAL
     Route: 048
     Dates: start: 20050702, end: 20050717
  2. ENOXAPARIN SODIUM [Suspect]
     Dosage: 50MG  EVERY 12 HOURS SUBCUTANEOUS
     Route: 058
     Dates: start: 20050626, end: 20050717

REACTIONS (2)
  - INTERNATIONAL NORMALISED RATIO INCREASED [None]
  - MELAENA [None]
